FAERS Safety Report 8439126-4 (Version None)
Quarter: 2012Q2

REPORT INFORMATION
  Report Type: 
  Country: None (occurrence: None)
  Receive Date: 20120615
  Receipt Date: 20120605
  Transmission Date: 20120825
  Serious: Yes (Other)
  Sender: FDA-Public Use
  Company Number: US-JNJFOC-20120603596

PATIENT
  Sex: Female
  Weight: 54.43 kg

DRUGS (2)
  1. REMICADE [Suspect]
     Indication: COLITIS ULCERATIVE
     Route: 042
     Dates: end: 20111025
  2. STEROIDS NOS [Concomitant]
     Route: 065

REACTIONS (9)
  - WISDOM TEETH REMOVAL [None]
  - FEELING ABNORMAL [None]
  - PALPITATIONS [None]
  - CHEST PAIN [None]
  - BLOOD PRESSURE INCREASED [None]
  - DYSPNOEA [None]
  - ABNORMAL LOSS OF WEIGHT [None]
  - SPUTUM DISCOLOURED [None]
  - APHONIA [None]
